FAERS Safety Report 14187126 (Version 1)
Quarter: 2017Q4

REPORT INFORMATION
  Report Type: Spontaneous
  Country: FR (occurrence: FR)
  Receive Date: 20171114
  Receipt Date: 20171114
  Transmission Date: 20180321
  Serious: Yes (Hospitalization)
  Sender: FDA-Public Use
  Company Number: FR-MERCK KGAA-2033980

PATIENT
  Age: 74 Year
  Sex: Female

DRUGS (1)
  1. NOVOTHYROX [Suspect]
     Active Substance: LEVOTHYROXINE SODIUM
     Indication: THYROID DISORDER
     Dates: start: 2017

REACTIONS (14)
  - Lung infection [None]
  - Pulmonary embolism [None]
  - Drug hypersensitivity [None]
  - Presyncope [None]
  - Weight decreased [None]
  - Lung disorder [None]
  - Constipation [Not Recovered/Not Resolved]
  - Malaise [None]
  - Skin odour abnormal [None]
  - Hyperhidrosis [None]
  - Diarrhoea [Not Recovered/Not Resolved]
  - Abdominal pain [Not Recovered/Not Resolved]
  - Insomnia [None]
  - Pain [None]

NARRATIVE: CASE EVENT DATE: 2017
